FAERS Safety Report 14045251 (Version 8)
Quarter: 2018Q3

REPORT INFORMATION
  Report Type: Report from Study
  Country: None (occurrence: US)
  Receive Date: 20171005
  Receipt Date: 20180827
  Transmission Date: 20181010
  Serious: Yes (Hospitalization, Disabling, Other)
  Sender: FDA-Public Use
  Company Number: US-ABBVIE-17K-163-2115883-00

PATIENT
  Age: 66 Year
  Sex: Female
  Weight: 90.8 kg

DRUGS (4)
  1. FOLIC ACID. [Concomitant]
     Active Substance: FOLIC ACID
     Indication: PRODUCT USED FOR UNKNOWN INDICATION
  2. HUMIRA [Suspect]
     Active Substance: ADALIMUMAB
     Indication: RHEUMATOID ARTHRITIS
     Route: 058
     Dates: start: 2009, end: 2017
  3. HUMIRA [Suspect]
     Active Substance: ADALIMUMAB
     Route: 058
  4. METHOTREXATE. [Concomitant]
     Active Substance: METHOTREXATE
     Indication: RHEUMATOID ARTHRITIS

REACTIONS (26)
  - Umbilical hernia [Recovered/Resolved]
  - Arteriospasm coronary [Unknown]
  - Diverticulitis [Recovered/Resolved]
  - Rheumatoid arthritis [Not Recovered/Not Resolved]
  - Mass excision [Unknown]
  - Ingrowing nail [Recovering/Resolving]
  - Weight increased [Not Recovered/Not Resolved]
  - Skin discolouration [Not Recovered/Not Resolved]
  - Knee arthroplasty [Recovered/Resolved]
  - Bone density decreased [Unknown]
  - Urinary tract infection [Recovered/Resolved]
  - Umbilical hernia [Recovered/Resolved]
  - Bronchitis [Recovering/Resolving]
  - Abdominal hernia [Recovered/Resolved]
  - Gait disturbance [Not Recovered/Not Resolved]
  - Neuralgia [Unknown]
  - Hernia [Not Recovered/Not Resolved]
  - Cystitis [Recovered/Resolved]
  - Osteoarthritis [Recovered/Resolved]
  - Post procedural complication [Not Recovered/Not Resolved]
  - Muscle spasms [Not Recovered/Not Resolved]
  - Muscular weakness [Not Recovered/Not Resolved]
  - Blood cholesterol increased [Not Recovered/Not Resolved]
  - Musculoskeletal pain [Recovering/Resolving]
  - Pain in extremity [Unknown]
  - Arthritis [Not Recovered/Not Resolved]

NARRATIVE: CASE EVENT DATE: 2014
